FAERS Safety Report 4561599-8 (Version None)
Quarter: 2005Q1

REPORT INFORMATION
  Report Type: 
  Country: None (occurrence: None)
  Receive Date: 20050126
  Receipt Date: 20041214
  Transmission Date: 20050727
  Serious: Yes (Other)
  Sender: FDA-Public Use
  Company Number: US-GLAXOSMITHKLINE-A0537254A

PATIENT
  Age: 37 Year
  Sex: Male
  Weight: 72.7 kg

DRUGS (3)
  1. LAMICTAL [Suspect]
     Indication: BIPOLAR DISORDER
     Route: 048
     Dates: start: 20040101
  2. NORTRIPTYLINE HCL [Concomitant]
     Indication: DEPRESSION
     Dosage: 75MG AT NIGHT
     Route: 048
     Dates: start: 20030101
  3. DEXEDRINE [Concomitant]
     Indication: ATTENTION DEFICIT/HYPERACTIVITY DISORDER
     Dosage: 70MG PER DAY
     Route: 048
     Dates: start: 20030101

REACTIONS (3)
  - APHASIA [None]
  - BALANCE DISORDER [None]
  - CORNEAL EPITHELIUM DISORDER [None]
